FAERS Safety Report 13369234 (Version 2)
Quarter: 2017Q1

REPORT INFORMATION
  Report Type: Spontaneous
  Country: US (occurrence: US)
  Receive Date: 20170324
  Receipt Date: 20170328
  Transmission Date: 20170429
  Serious: No
  Sender: FDA-Public Use
  Company Number: US-ASTRAZENECA-2017SE30032

PATIENT
  Sex: Female

DRUGS (1)
  1. BYDUREON [Suspect]
     Active Substance: EXENATIDE
     Dosage: 2 MG 4 COUNT ONCE A WEEK
     Route: 058
     Dates: start: 20170228

REACTIONS (3)
  - Injection site haemorrhage [Unknown]
  - Underdose [Unknown]
  - Product label confusion [Unknown]

NARRATIVE: CASE EVENT DATE: 20170228
